FAERS Safety Report 18056687 (Version 2)
Quarter: 2023Q1

REPORT INFORMATION
  Report Type: Spontaneous
  Country: US (occurrence: US)
  Receive Date: 20200723
  Receipt Date: 20230202
  Transmission Date: 20230418
  Serious: Yes (Hospitalization, Other)
  Sender: FDA-Public Use
  Company Number: US-SUN PHARMACEUTICAL INDUSTRIES LTD-2020R1-253610

PATIENT
  Age: 16 Year
  Sex: Male

DRUGS (1)
  1. FENTANYL [Suspect]
     Active Substance: FENTANYL
     Indication: Product used for unknown indication
     Dosage: UNK (3-4)
     Route: 048

REACTIONS (3)
  - Overdose [Unknown]
  - Leukoencephalopathy [Recovering/Resolving]
  - Wrong product administered [Not Recovered/Not Resolved]
